FAERS Safety Report 7546650-5 (Version None)
Quarter: 2011Q2

REPORT INFORMATION
  Report Type: 
  Country: None (occurrence: None)
  Receive Date: 20110614
  Receipt Date: 20110603
  Transmission Date: 20111010
  Serious: Yes (Hospitalization)
  Sender: FDA-Public Use
  Company Number: JP-SANOFI-AVENTIS-2011SA034831

PATIENT
  Age: 70 Year
  Sex: Male
  Weight: 61.9 kg

DRUGS (10)
  1. OXALIPLATIN [Suspect]
     Indication: GASTRIC CANCER
     Route: 042
     Dates: start: 20101116, end: 20101116
  2. OXALIPLATIN [Suspect]
     Route: 042
     Dates: start: 20110510, end: 20110510
  3. KETOPROFEN [Concomitant]
     Indication: CERVICOBRACHIAL SYNDROME
     Route: 061
  4. OPALMON [Concomitant]
     Indication: CERVICOBRACHIAL SYNDROME
     Route: 048
  5. BRONUCK [Concomitant]
     Indication: CONJUNCTIVITIS
     Route: 047
  6. KARY UNI [Concomitant]
     Indication: CATARACT
     Route: 047
  7. GIMERACIL/OTERACIL POTASSIUM/TEGAFUR [Suspect]
     Indication: GASTRIC CANCER
     Route: 048
     Dates: start: 20101116, end: 20110520
  8. SODIUM ALGINATE [Concomitant]
     Route: 048
     Dates: start: 20110521
  9. PATANOL [Concomitant]
     Indication: CONJUNCTIVITIS
     Route: 047
  10. LANSOPRAZOLE [Concomitant]
     Route: 048
     Dates: start: 20110521

REACTIONS (1)
  - TUMOUR HAEMORRHAGE [None]
